FAERS Safety Report 5971313-7 (Version None)
Quarter: 2008Q4

REPORT INFORMATION
  Report Type: 
  Country: None (occurrence: None)
  Receive Date: 20081128
  Receipt Date: 20081119
  Transmission Date: 20090506
  Serious: Yes (Hospitalization)
  Sender: FDA-Public Use
  Company Number: FR-PFIZER INC-2008098627

PATIENT
  Sex: Female

DRUGS (3)
  1. SOLU-MEDROL [Suspect]
     Route: 042
     Dates: start: 20080602
  2. ELOXATIN [Suspect]
     Route: 042
     Dates: start: 20080602, end: 20080602
  3. ZOPHREN [Suspect]
     Route: 042
     Dates: start: 20080602

REACTIONS (5)
  - DYSPHAGIA [None]
  - PRURITUS [None]
  - RASH [None]
  - TONGUE OEDEMA [None]
  - URTICARIA [None]
